FAERS Safety Report 9344529 (Version 1)
Quarter: 2013Q2

REPORT INFORMATION
  Report Type: Other
  Country: IT (occurrence: IT)
  Receive Date: 20130612
  Receipt Date: 20130612
  Transmission Date: 20140414
  Serious: Yes (Other)
  Sender: FDA-Public Use
  Company Number: IT-WATSON-2013-09980

PATIENT
  Age: 43 Year
  Sex: Male

DRUGS (2)
  1. RISPERIDONE (UNKNOWN) [Suspect]
     Indication: MANIA
     Dosage: 3 MG, DAILY
     Route: 048
     Dates: start: 20110318, end: 20130517
  2. RISPERIDONE (UNKNOWN) [Suspect]
     Indication: MANIA

REACTIONS (1)
  - Psychotic behaviour [Recovered/Resolved]
